FAERS Safety Report 4291028-3 (Version None)
Quarter: 2004Q1

REPORT INFORMATION
  Report Type: 
  Country: None (occurrence: None)
  Receive Date: 20040211
  Receipt Date: 20031029
  Transmission Date: 20041129
  Serious: No
  Sender: FDA-Public Use
  Company Number: US-GLAXOSMITHKLINE-A0431965A

PATIENT
  Sex: Male

DRUGS (1)
  1. PAXIL [Suspect]
     Dates: start: 19950101

REACTIONS (2)
  - APATHY [None]
  - SEXUAL DYSFUNCTION [None]
